FAERS Safety Report 9911013 (Version 2)
Quarter: 2014Q1

REPORT INFORMATION
  Report Type: Spontaneous
  Country: US (occurrence: US)
  Receive Date: 20140219
  Receipt Date: 20140219
  Transmission Date: 20141002
  Serious: No
  Sender: FDA-Public Use
  Company Number: US-GILEAD-2012-0055971

PATIENT
  Sex: Female

DRUGS (4)
  1. LETAIRIS [Suspect]
     Indication: PULMONARY HYPERTENSION
     Dosage: 10 MG, UNK
     Route: 048
     Dates: start: 20120119
  2. LETAIRIS [Suspect]
     Indication: HEART DISEASE CONGENITAL
     Dosage: 5 UNK, UNK
     Route: 048
  3. LETAIRIS [Suspect]
     Indication: VENTRICULAR SEPTAL DEFECT
     Dosage: 5 UNK, UNK
     Route: 048
  4. LETAIRIS [Suspect]
     Indication: EISENMENGER^S SYNDROME

REACTIONS (6)
  - Malaise [Unknown]
  - Eye swelling [Unknown]
  - Local swelling [Unknown]
  - Nasal congestion [Unknown]
  - Local swelling [Unknown]
  - Swelling face [Unknown]
